FAERS Safety Report 25666188 (Version 1)
Quarter: 2025Q3

REPORT INFORMATION
  Report Type: Spontaneous
  Country: EU (occurrence: EU)
  Receive Date: 20250811
  Receipt Date: 20250811
  Transmission Date: 20251021
  Serious: Yes (Hospitalization, Other)
  Sender: BRISTOL-MYERS SQUIBB COMPANY
  Company Number: None

PATIENT
  Age: 78 Year
  Sex: Male
  Weight: 97.5 kg

DRUGS (1)
  1. REBLOZYL [Suspect]
     Active Substance: LUSPATERCEPT-AAMT
     Indication: Chronic lymphocytic leukaemia
     Route: 058
     Dates: start: 20241224, end: 20250718

REACTIONS (2)
  - Adrenal cortex necrosis [Recovering/Resolving]
  - Adrenal thrombosis [Recovering/Resolving]

NARRATIVE: CASE EVENT DATE: 20250716
